FAERS Safety Report 12657977 (Version 1)
Quarter: 2016Q3

REPORT INFORMATION
  Report Type: Spontaneous
  Country: US (occurrence: US)
  Receive Date: 20160817
  Receipt Date: 20160817
  Transmission Date: 20161109
  Serious: No
  Sender: FDA-Public Use
  Company Number: US-ACCORD-042039

PATIENT
  Sex: Male

DRUGS (1)
  1. LISINOPRIL. [Suspect]
     Active Substance: LISINOPRIL
     Indication: PRODUCT USED FOR UNKNOWN INDICATION
     Dosage: THE USUAL DOSAGE RANGE WAS 20 TO 40 MG PER DAY.?PATIENT WAS CUTTING 40MG TABLETS IN HALF

REACTIONS (2)
  - Intentional product use issue [Unknown]
  - Dizziness [Unknown]
